FAERS Safety Report 21049755 (Version 2)
Quarter: 2022Q3

REPORT INFORMATION
  Report Type: Spontaneous
  Country: US (occurrence: US)
  Receive Date: 20220706
  Receipt Date: 20220819
  Transmission Date: 20221026
  Serious: No
  Sender: FDA-Public Use
  Company Number: US-PFIZER INC-202200863854

PATIENT
  Sex: Male

DRUGS (1)
  1. GENOTROPIN [Suspect]
     Active Substance: SOMATROPIN
     Dosage: 1.4 ON MONDAY, WEDNESDAY AND FRIDAY AND 1.6 ON TUESDAY, THURSDAY, SATURDAY AND SUNDAY

REACTIONS (2)
  - Device issue [Unknown]
  - Device information output issue [Unknown]
